FAERS Safety Report 6773373-2 (Version None)
Quarter: 2010Q2

REPORT INFORMATION
  Report Type: 
  Country: None (occurrence: None)
  Receive Date: 20100614
  Receipt Date: 20100602
  Transmission Date: 20101027
  Serious: Yes (Life-Threatening, Hospitalization, Other)
  Sender: FDA-Public Use
  Company Number: 2009AC000091

PATIENT
  Age: 22 Year
  Sex: Female
  Weight: 98.8842 kg

DRUGS (68)
  1. DIGOXIN [Suspect]
     Indication: SUPRAVENTRICULAR TACHYCARDIA
     Dosage: 0.125 MG; QD; PO
     Route: 048
     Dates: start: 19940101, end: 19940601
  2. DIGOXIN [Suspect]
     Dosage: 0.125 MG; QD; PO
     Route: 048
     Dates: start: 20040421, end: 20040101
  3. DIGOXIN [Suspect]
     Dosage: 0.125 MG; QD; PO
     Route: 048
     Dates: start: 19940601
  4. DIGOXIN [Suspect]
     Dosage: 0.125 MG; QD; PO
     Route: 048
     Dates: start: 20040315, end: 20040420
  5. DIGOXIN [Suspect]
     Dosage: 0.125 MG; QD; PO
     Route: 048
     Dates: start: 20040101, end: 20070905
  6. ICAR-C [Concomitant]
  7. LEVOTHYROXINE SODIUM [Concomitant]
  8. VERAPAMIL [Concomitant]
  9. METRONIDAZOLE [Concomitant]
  10. AMOXICILLIN [Concomitant]
  11. MECLIZINE [Concomitant]
  12. METHYLPRED [Concomitant]
  13. TRAZODONE HYDROCHLORIDE [Concomitant]
  14. MEDROXYPR AC [Concomitant]
  15. CEPHALEXIN [Concomitant]
  16. FLUCONAZOLE [Concomitant]
  17. NYSTAT/TRIAM [Concomitant]
  18. COTRIM [Concomitant]
  19. BETHANECHOL [Concomitant]
  20. DOXYCYCL HYC [Concomitant]
  21. POLY-VENT [Concomitant]
  22. CPM/PSE [Concomitant]
  23. PROMETHEGAN [Concomitant]
  24. KETOCONAZOLE [Concomitant]
  25. MUPIROCIN [Concomitant]
  26. RIFAMPIN [Concomitant]
  27. TRIAMCINOLONE [Concomitant]
  28. AVELOX [Concomitant]
  29. CIPROFLOXACIN [Concomitant]
  30. POLY HIST [Concomitant]
  31. METOPROLOL TARTRATE [Concomitant]
  32. TOPROL-XL [Concomitant]
  33. VERAPAMIL [Concomitant]
  34. SYNTHROID [Concomitant]
  35. PROPRANOLOL [Concomitant]
  36. MULTI-VITAMIN [Concomitant]
  37. IRON GLUCONATE [Concomitant]
  38. TYLENOL [Concomitant]
  39. DEPO-MEDROL [Concomitant]
  40. LORTAB [Concomitant]
  41. LEVAQUIN [Concomitant]
  42. PANMIST LA [Concomitant]
  43. LEXAPRO [Concomitant]
  44. BACITRACIN [Concomitant]
  45. BACTRIM DS [Concomitant]
  46. RELAFEN [Concomitant]
  47. PEPCID [Concomitant]
  48. ATARAX [Concomitant]
  49. CARDIZEM [Concomitant]
  50. TORADOL [Concomitant]
  51. NORFLEX [Concomitant]
  52. BENADRYL [Concomitant]
  53. ASPIRIN [Concomitant]
  54. MICARDIS [Concomitant]
  55. ANCEF [Concomitant]
  56. DURICEF [Concomitant]
  57. KENALOG [Concomitant]
  58. COMPAZINE [Concomitant]
  59. ZOFRAN [Concomitant]
  60. FIORICET [Concomitant]
  61. MICARDIS HCT [Concomitant]
  62. VERAMYST [Concomitant]
  63. NASONEX [Concomitant]
  64. PREMARIN [Concomitant]
  65. PROVERA [Concomitant]
  66. PHENERGAN [Concomitant]
  67. DECADRON [Concomitant]
  68. TESSALON [Concomitant]

REACTIONS (66)
  - ABDOMINAL PAIN UPPER [None]
  - ANAEMIA [None]
  - ANXIETY [None]
  - ASTHENIA [None]
  - ATRIOVENTRICULAR DISSOCIATION [None]
  - AUTOIMMUNE THYROIDITIS [None]
  - BACK PAIN [None]
  - BITE [None]
  - BRONCHITIS [None]
  - BURSITIS [None]
  - CARDIOMEGALY [None]
  - CELLULITIS [None]
  - CERVICAL CYST [None]
  - CHEST DISCOMFORT [None]
  - CHILLS [None]
  - DEPRESSED LEVEL OF CONSCIOUSNESS [None]
  - DERMAL CYST [None]
  - DIZZINESS [None]
  - DRUG EXPOSURE DURING PREGNANCY [None]
  - DYSFUNCTIONAL UTERINE BLEEDING [None]
  - DYSPHAGIA [None]
  - DYSPNOEA [None]
  - EPISTAXIS [None]
  - FLANK PAIN [None]
  - GOITRE [None]
  - GRIEF REACTION [None]
  - HAEMATOCRIT DECREASED [None]
  - HEADACHE [None]
  - HYPERVENTILATION [None]
  - HYPOTHYROIDISM [None]
  - IDIOPATHIC URTICARIA [None]
  - JOINT SPRAIN [None]
  - LIP SWELLING [None]
  - MENORRHAGIA [None]
  - MITRAL VALVE PROLAPSE [None]
  - MULTIPLE INJURIES [None]
  - MUSCLE SPASMS [None]
  - NASAL CONGESTION [None]
  - NAUSEA [None]
  - NODAL RHYTHM [None]
  - NON-CARDIAC CHEST PAIN [None]
  - OEDEMA PERIPHERAL [None]
  - OROPHARYNGEAL PAIN [None]
  - OSTEOARTHRITIS [None]
  - PAIN [None]
  - PALPITATIONS [None]
  - PHARYNGITIS [None]
  - PHOTOPHOBIA [None]
  - PYREXIA [None]
  - RESPIRATORY TRACT INFECTION [None]
  - RHINITIS ALLERGIC [None]
  - ROAD TRAFFIC ACCIDENT [None]
  - SALIVARY GLAND CANCER [None]
  - SINUS BRADYCARDIA [None]
  - SINUSITIS [None]
  - SUPRAVENTRICULAR EXTRASYSTOLES [None]
  - SUPRAVENTRICULAR TACHYCARDIA [None]
  - SWELLING [None]
  - THYROID NEOPLASM [None]
  - TONSILLAR DISORDER [None]
  - UNEVALUABLE EVENT [None]
  - UPPER RESPIRATORY TRACT INFECTION [None]
  - URINARY TRACT INFECTION [None]
  - UTERINE POLYP [None]
  - VESTIBULAR NEURONITIS [None]
  - VOCAL CORD PARESIS [None]
